FAERS Safety Report 10458103 (Version 1)
Quarter: 2014Q3

REPORT INFORMATION
  Report Type: Spontaneous
  Country: JP (occurrence: JP)
  Receive Date: 20140917
  Receipt Date: 20140917
  Transmission Date: 20150326
  Serious: Yes (Other)
  Sender: FDA-Public Use
  Company Number: JP-ROCHE-1460275

PATIENT
  Age: 30 Year
  Sex: Female

DRUGS (15)
  1. ALPRAZOLAM. [Suspect]
     Active Substance: ALPRAZOLAM
     Indication: BIPOLAR II DISORDER
     Route: 065
  2. PAROXETINE [Suspect]
     Active Substance: PAROXETINE\PAROXETINE HYDROCHLORIDE
     Indication: BIPOLAR II DISORDER
     Route: 065
  3. TRIAZOLAM. [Suspect]
     Active Substance: TRIAZOLAM
     Indication: BIPOLAR II DISORDER
     Route: 065
  4. BROTIZOLAM [Suspect]
     Active Substance: BROTIZOLAM
     Indication: BIPOLAR II DISORDER
     Route: 065
  5. RILMAZAFONE HYDROCHLORIDE [Suspect]
     Active Substance: RILMAZAFONE HYDROCHLORIDE
     Indication: BIPOLAR II DISORDER
     Route: 065
  6. FLURAZEPAM [Suspect]
     Active Substance: FLURAZEPAM\FLURAZEPAM HYDROCHLORIDE
     Indication: BIPOLAR II DISORDER
     Route: 065
  7. ZOLPIDEM [Suspect]
     Active Substance: ZOLPIDEM\ZOLPIDEM TARTRATE
     Indication: BIPOLAR II DISORDER
     Route: 065
  8. DIAZEPAM. [Suspect]
     Active Substance: DIAZEPAM
     Indication: BIPOLAR II DISORDER
     Route: 065
  9. ESTAZOLAM. [Suspect]
     Active Substance: ESTAZOLAM
     Indication: BIPOLAR II DISORDER
     Route: 065
  10. NITRAZEPAM [Suspect]
     Active Substance: NITRAZEPAM
     Indication: BIPOLAR II DISORDER
     Route: 065
  11. LORMETAZEPAM [Suspect]
     Active Substance: LORMETAZEPAM
     Indication: BIPOLAR II DISORDER
     Route: 065
  12. FLUNITRAZEPAM [Suspect]
     Active Substance: FLUNITRAZEPAM
     Indication: BIPOLAR II DISORDER
     Route: 065
  13. RISPERIDONE. [Suspect]
     Active Substance: RISPERIDONE
     Indication: BIPOLAR II DISORDER
     Route: 065
  14. OLANZAPINE. [Suspect]
     Active Substance: OLANZAPINE
     Indication: BIPOLAR II DISORDER
     Route: 065
  15. CHLORPROMAZINE [Suspect]
     Active Substance: CHLORPROMAZINE
     Indication: BIPOLAR II DISORDER
     Route: 065

REACTIONS (5)
  - Condition aggravated [Unknown]
  - Amnesia [Unknown]
  - Off label use [Unknown]
  - Suicide attempt [Unknown]
  - Bipolar I disorder [Unknown]
